FAERS Safety Report 8171811-4 (Version None)
Quarter: 2012Q1

REPORT INFORMATION
  Report Type: 
  Country: None (occurrence: None)
  Receive Date: 20120228
  Receipt Date: 20120217
  Transmission Date: 20120608
  Serious: Yes (Hospitalization)
  Sender: FDA-Public Use
  Company Number: ES-GLAXOSMITHKLINE-B0783373A

PATIENT
  Age: 38 Year
  Sex: Female

DRUGS (1)
  1. POTIGA [Suspect]
     Indication: EPILEPSY
     Dosage: 150MG PER DAY
     Route: 048
     Dates: start: 20120101, end: 20120201

REACTIONS (2)
  - URINARY RETENTION [None]
  - DISCOMFORT [None]
